FAERS Safety Report 6055876-1 (Version None)
Quarter: 2009Q1

REPORT INFORMATION
  Report Type: 
  Country: None (occurrence: None)
  Receive Date: 20090126
  Receipt Date: 20090123
  Transmission Date: 20090719
  Serious: Yes (Hospitalization)
  Sender: FDA-Public Use
  Company Number: 510-5-2005-30967

PATIENT
  Age: 78 Year
  Sex: Male
  Weight: 86 kg

DRUGS (12)
  1. LIDOCAINE [Suspect]
     Indication: POST HERPETIC NEURALGIA
     Dates: start: 20031023, end: 20071217
  2. SURAZEM [Concomitant]
  3. NEURONTIN [Concomitant]
  4. IMOVANE [Concomitant]
  5. ASPIRIN [Concomitant]
  6. LIPITOR [Concomitant]
  7. RANITIDINE [Concomitant]
  8. ACETAMINOPHEN [Concomitant]
  9. VOLTAREN [Concomitant]
  10. MURAZYME [Concomitant]
  11. NEXIUM [Concomitant]
  12. PENTASA [Concomitant]

REACTIONS (4)
  - ANGINA PECTORIS [None]
  - INTESTINAL HAEMORRHAGE [None]
  - OESOPHAGEAL HAEMORRHAGE [None]
  - OESOPHAGITIS [None]
